FAERS Safety Report 15142833 (Version 1)
Quarter: 2018Q3

REPORT INFORMATION
  Report Type: Spontaneous
  Country: US (occurrence: US)
  Receive Date: 20180713
  Receipt Date: 20180713
  Transmission Date: 20181010
  Serious: Yes (Other)
  Sender: FDA-Public Use
  Company Number: US-PFIZER INC-2018277893

PATIENT
  Age: 77 Year
  Sex: Female

DRUGS (1)
  1. GABAPENTIN. [Suspect]
     Active Substance: GABAPENTIN
     Indication: SPINAL CORD INJURY
     Dosage: 300 MG, 3X/DAY
     Route: 048
     Dates: start: 20170114, end: 20180607

REACTIONS (18)
  - Eating disorder [Unknown]
  - Depression [Unknown]
  - Intentional product misuse [Unknown]
  - Product use in unapproved indication [Unknown]
  - Suicidal ideation [Unknown]
  - Asthenia [Unknown]
  - Fear [Unknown]
  - Dizziness [Unknown]
  - Heart rate increased [Unknown]
  - Withdrawal syndrome [Not Recovered/Not Resolved]
  - Weight decreased [Unknown]
  - Agitation [Unknown]
  - Blood pressure fluctuation [Unknown]
  - Anxiety [Unknown]
  - Insomnia [Unknown]
  - Nausea [Unknown]
  - Dyspnoea [Unknown]
  - Gait disturbance [Unknown]

NARRATIVE: CASE EVENT DATE: 20170114
